FAERS Safety Report 22619904 (Version 1)
Quarter: 2023Q2

REPORT INFORMATION
  Report Type: Spontaneous
  Country: US (occurrence: None)
  Receive Date: 20230615
  Receipt Date: 20230615
  Transmission Date: 20230722
  Serious: Yes (Life-Threatening)
  Sender: FDA-Public Use
  Company Number: None

PATIENT
  Age: 44 Year
  Sex: Female
  Weight: 112 kg

DRUGS (1)
  1. IODIXANOL [Suspect]
     Active Substance: IODIXANOL
     Dosage: 100 ML ONCE IV?
     Route: 042
     Dates: start: 20230530, end: 20230530

REACTIONS (2)
  - Pruritus [None]
  - Pruritus [None]

NARRATIVE: CASE EVENT DATE: 20230530
